FAERS Safety Report 20652212 (Version 2)
Quarter: 2022Q2

REPORT INFORMATION
  Report Type: Other
  Country: FR (occurrence: FR)
  Receive Date: 20220330
  Receipt Date: 20220602
  Transmission Date: 20220721
  Serious: Yes (Other)
  Sender: FDA-Public Use
  Company Number: FR-ROCHE-3041759

PATIENT
  Age: 81 Year
  Sex: Male

DRUGS (3)
  1. ATEZOLIZUMAB [Suspect]
     Active Substance: ATEZOLIZUMAB
     Indication: Hepatocellular carcinoma
     Route: 065
  2. BEVACIZUMAB [Suspect]
     Active Substance: BEVACIZUMAB
     Indication: Hepatocellular carcinoma
     Route: 065
  3. ILOPROST [Concomitant]
     Active Substance: ILOPROST
     Dosage: FOR 5 CONSECUTIVE DAYS

REACTIONS (2)
  - Extremity necrosis [Unknown]
  - Off label use [Unknown]
